FAERS Safety Report 18604732 (Version 1)
Quarter: 2020Q4

REPORT INFORMATION
  Report Type: Spontaneous
  Country: US (occurrence: US)
  Receive Date: 20201211
  Receipt Date: 20201211
  Transmission Date: 20210114
  Serious: No
  Sender: FDA-Public Use
  Company Number: None

PATIENT
  Age: 54 Year
  Sex: Male
  Weight: 150.3 kg

DRUGS (3)
  1. OXALIPLATIN. [Suspect]
     Active Substance: OXALIPLATIN
     Indication: COLON CANCER STAGE III
     Dosage: ?          OTHER FREQUENCY:Q 3 WEEKS;?
     Route: 042
     Dates: start: 20201008
  2. FOSAPREPITANT [Concomitant]
     Active Substance: FOSAPREPITANT
     Dates: start: 20201008
  3. CAPECITABINE. [Concomitant]
     Active Substance: CAPECITABINE
     Dates: start: 20201008

REACTIONS (5)
  - Blood pressure decreased [None]
  - Infusion related reaction [None]
  - Nasopharyngitis [None]
  - Tremor [None]
  - Chills [None]

NARRATIVE: CASE EVENT DATE: 20201119
